FAERS Safety Report 16583103 (Version 2)
Quarter: 2019Q4

REPORT INFORMATION
  Report Type: Spontaneous
  Country: US (occurrence: US)
  Receive Date: 20190717
  Receipt Date: 20191004
  Transmission Date: 20200122
  Serious: No
  Sender: FDA-Public Use
  Company Number: US-PFIZER INC-2019179827

PATIENT
  Age: 87 Year
  Sex: Female
  Weight: 68 kg

DRUGS (5)
  1. IBRANCE [Suspect]
     Active Substance: PALBOCICLIB
     Indication: BREAST CANCER METASTATIC
     Dosage: 100 MG, UNK
  2. IBRANCE [Suspect]
     Active Substance: PALBOCICLIB
     Indication: NEOPLASM MALIGNANT
     Dosage: UNK UNK, 1X/DAY  [ONCE A DAY, PILL FORM]
     Dates: start: 201811
  3. IBRANCE [Suspect]
     Active Substance: PALBOCICLIB
     Dosage: UNK, CYCLIC, (21 DAYS ON 7 DAYS OFF)
     Dates: start: 20181115
  4. FASLODEX [Concomitant]
     Active Substance: FULVESTRANT
     Dosage: UNK UNK, MONTHLY (MONTHLY, 2 SHOTS OF FASLODEX)
  5. PROLIA [Concomitant]
     Active Substance: DENOSUMAB
     Dosage: UNK UNK, EVERY 3 MONTHS,1 SHOT

REACTIONS (2)
  - Diarrhoea [Recovered/Resolved]
  - Fatigue [Unknown]

NARRATIVE: CASE EVENT DATE: 20181115
